FAERS Safety Report 19982523 (Version 2)
Quarter: 2021Q4

REPORT INFORMATION
  Report Type: Report from Study
  Country: US (occurrence: US)
  Receive Date: 20211021
  Receipt Date: 20211130
  Transmission Date: 20220303
  Serious: Yes (Hospitalization)
  Sender: FDA-Public Use
  Company Number: US-PFIZER INC-202101366857

PATIENT
  Age: 18 Year
  Sex: Female
  Weight: 85.9 kg

DRUGS (6)
  1. VINCRISTINE SULFATE [Suspect]
     Active Substance: VINCRISTINE SULFATE
     Indication: Acute lymphocytic leukaemia
     Dosage: 2 MG, ONCE (DAY 15)
     Route: 042
     Dates: start: 20210917
  2. CYTARABINE [Suspect]
     Active Substance: CYTARABINE
     Indication: Acute lymphocytic leukaemia
     Dosage: 145 MG, 1X/DAY (QD) (DAY 1-4)
     Route: 042
     Dates: start: 20210903
  3. METHOTREXATE SODIUM [Suspect]
     Active Substance: METHOTREXATE SODIUM
     Indication: Acute lymphocytic leukaemia
     Dosage: 15 MG, ONCE (DAY 1-8-15)
     Route: 037
     Dates: start: 20210903
  4. CYCLOPHOSPHAMIDE [Suspect]
     Active Substance: CYCLOPHOSPHAMIDE
     Indication: Acute lymphocytic leukaemia
     Dosage: 1940 MG, ONCE (DAY 1)
     Route: 042
     Dates: start: 20210903
  5. RUXOLITINIB [Suspect]
     Active Substance: RUXOLITINIB
     Indication: Acute lymphocytic leukaemia
     Dosage: 95 MG, 2X/DAY (BID) (DAY 1-14)
     Route: 048
     Dates: start: 20210903
  6. MERCAPTOPURINE [Suspect]
     Active Substance: MERCAPTOPURINE
     Indication: Acute lymphocytic leukaemia
     Dosage: 150 MG, 1X/DAY QD (DAY 1-5, 8-12) (DAY 6-7, 13-14) TABLET
     Route: 048
     Dates: start: 20210903

REACTIONS (3)
  - Hyperglycaemia [Recovering/Resolving]
  - Anaemia [Recovering/Resolving]
  - Platelet count decreased [Recovering/Resolving]

NARRATIVE: CASE EVENT DATE: 20210917
